FAERS Safety Report 22129832 (Version 10)
Quarter: 2024Q3

REPORT INFORMATION
  Report Type: Spontaneous
  Country: IE (occurrence: IE)
  Receive Date: 20230323
  Receipt Date: 20240701
  Transmission Date: 20241016
  Serious: Yes (Hospitalization, Other)
  Sender: EXELIXIS
  Company Number: IE-EXELIXIS-CABO-22054778

PATIENT
  Age: 49 Year
  Sex: Male

DRUGS (8)
  1. CABOMETYX [Suspect]
     Active Substance: CABOZANTINIB S-MALATE
     Indication: Product used for unknown indication
     Dosage: 60 MG, QD
     Route: 065
  2. ENTYVIO [Suspect]
     Active Substance: VEDOLIZUMAB
     Indication: Colitis
     Dosage: 108 MILLIGRAM
     Route: 058
     Dates: start: 20220307
  3. RAMIPRIL [Concomitant]
     Active Substance: RAMIPRIL
     Dosage: 10 MG
  4. RAMIPRIL [Concomitant]
     Active Substance: RAMIPRIL
     Dosage: 5 MG, QD
  5. ESOMEPRAZOLE [Concomitant]
     Active Substance: ESOMEPRAZOLE
     Dosage: 40 MG, QD
     Route: 050
  6. LEVOTHYROXINE [Concomitant]
     Active Substance: LEVOTHYROXINE\LEVOTHYROXINE SODIUM
     Dosage: 100 MICROGRAM
  7. LEVOTHYROXINE [Concomitant]
     Active Substance: LEVOTHYROXINE\LEVOTHYROXINE SODIUM
     Dosage: 75 MICROGRAM, QD
  8. ATORVASTATIN [Concomitant]
     Active Substance: ATORVASTATIN
     Dosage: 10 MG, QD
     Route: 050

REACTIONS (13)
  - Lower respiratory tract infection [Unknown]
  - Back injury [Unknown]
  - Feeling hot [Unknown]
  - Cold sweat [Unknown]
  - Gastrointestinal infection [Unknown]
  - Contusion [Not Recovered/Not Resolved]
  - Skin ulcer [Not Recovered/Not Resolved]
  - Epistaxis [Unknown]
  - Abdominal pain [Unknown]
  - Blood pressure increased [Unknown]
  - Asthenia [Unknown]
  - Diarrhoea [Unknown]
  - Product use in unapproved indication [Unknown]

NARRATIVE: CASE EVENT DATE: 20220802
